FAERS Safety Report 6065461-3 (Version None)
Quarter: 2009Q1

REPORT INFORMATION
  Report Type: 
  Country: None (occurrence: None)
  Receive Date: 20090204
  Receipt Date: 20090121
  Transmission Date: 20090719
  Serious: Yes (Death)
  Sender: FDA-Public Use
  Company Number: US-JNJFOC-20090105960

PATIENT
  Sex: Female
  Weight: 97.52 kg

DRUGS (8)
  1. DURAGESIC-100 [Suspect]
     Indication: PAIN
     Route: 065
  2. OXYCODONE HCL [Concomitant]
  3. VALIUM [Concomitant]
  4. FLEXERIL [Concomitant]
  5. CARDIZEM [Concomitant]
  6. DIPHENHYDRAMINE HCL [Concomitant]
  7. TYLENOL [Concomitant]
  8. RESTORIL [Concomitant]

REACTIONS (3)
  - CHRONIC OBSTRUCTIVE PULMONARY DISEASE [None]
  - DRUG LEVEL INCREASED [None]
  - DRUG TOXICITY [None]
